FAERS Safety Report 7996879-7 (Version None)
Quarter: 2011Q4

REPORT INFORMATION
  Report Type: 
  Country: None (occurrence: None)
  Receive Date: 20111221
  Receipt Date: 20111216
  Transmission Date: 20120403
  Serious: Yes (Hospitalization)
  Sender: FDA-Public Use
  Company Number: IT-BRISTOL-MYERS SQUIBB COMPANY-16262651

PATIENT
  Age: 81 Year
  Sex: Male

DRUGS (5)
  1. VERAPAMIL [Concomitant]
  2. AMOXICILLIN [Suspect]
     Indication: PYREXIA
     Dosage: 1DF:3UNITS.
     Dates: start: 20111103, end: 20111107
  3. COUMADIN [Suspect]
     Indication: ATRIAL FIBRILLATION
     Dosage: 1DF:1UNIT 5MG.INTERRUPTED ON 14NOV11.
     Route: 048
     Dates: start: 19970101
  4. CITALOPRAM [Concomitant]
  5. NEXIUM [Concomitant]

REACTIONS (4)
  - ANAEMIA [None]
  - MUSCLE HAEMORRHAGE [None]
  - PYREXIA [None]
  - HYPOCOAGULABLE STATE [None]
